FAERS Safety Report 9714882 (Version 1)
Quarter: 2013Q4

REPORT INFORMATION
  Report Type: Spontaneous
  Country: JP (occurrence: None)
  Receive Date: 20131125
  Receipt Date: 20131125
  Transmission Date: 20140711
  Serious: Yes (Hospitalization)
  Sender: FDA-Public Use
  Company Number: FK201305050

PATIENT
  Age: 15 Year
  Sex: Female

DRUGS (7)
  1. ETOPOSIDE [Suspect]
     Indication: ALVEOLAR RHABDOMYOSARCOMA
     Dosage: 5D, 100 MG/M2, INTRAVENOUS (NOT OTHERWISE SPECIFIED)
     Route: 042
  2. IFOSFAMIDE [Suspect]
     Indication: ALVEOLAR RHABDOMYOSARCOMA
     Dosage: 5 D, 1800 MG/M2, INTRAVENOUS (NOT OTHERWISE SPECIFIED)
     Route: 042
  3. DACTINOMYCIN [Suspect]
     Indication: ALVEOLAR RHABDOMYOSARCOMA
     Dosage: 5 D, 0.015 MG/KG, INTRAVENOUS (NOT OTHERWISE SPECIFIED)
     Route: 042
  4. VINCRISTINE (VINCRISTINE) (VINCRISTINE) [Suspect]
     Indication: ALVEOLAR RHABDOMYOSARCOMA
     Dosage: 1.5 MG/M2, ON DAYS 1 AND 8, INTRAVENOUS (NOT OTHERWISE SPECIFIED)
     Route: 042
  5. CYCLOPHOSPHAMIDE (CYCLOPHOSPHAMIDE) [Concomitant]
  6. PIRARUBICIN (PIRARUBICIN) (PIRA-RUBICIN) [Concomitant]
  7. CISPLATIN (CISPLATIN) [Concomitant]

REACTIONS (6)
  - Rhabdomyolysis [None]
  - General physical health deterioration [None]
  - Respiratory failure [None]
  - Disseminated intravascular coagulation [None]
  - Renal failure acute [None]
  - Peritoneal dialysis [None]
